FAERS Safety Report 24362983 (Version 1)
Quarter: 2024Q3

REPORT INFORMATION
  Report Type: Spontaneous
  Country: US (occurrence: None)
  Receive Date: 20240925
  Receipt Date: 20240925
  Transmission Date: 20241016
  Serious: Yes (Hospitalization)
  Sender: Public
  Company Number: None

PATIENT
  Age: 20 Year
  Sex: Female
  Weight: 67.5 kg

DRUGS (1)
  1. DROPERIDOL [Suspect]
     Active Substance: DROPERIDOL
     Indication: Nausea
     Dates: start: 20240719

REACTIONS (6)
  - Heart rate increased [None]
  - Blood pressure increased [None]
  - Dizziness [None]
  - Confusional state [None]
  - Mental disorder [None]
  - Product communication issue [None]

NARRATIVE: CASE EVENT DATE: 20240719
